FAERS Safety Report 20507289 (Version 1)
Quarter: 2022Q1

REPORT INFORMATION
  Report Type: Spontaneous
  Country: US (occurrence: None)
  Receive Date: 20220222
  Receipt Date: 20220222
  Transmission Date: 20220423
  Serious: Yes (unspecified)
  Sender: FDA-Public Use
  Company Number: None

PATIENT
  Sex: Male
  Weight: 82.35 kg

DRUGS (14)
  1. DEXTROAMPHET SACCHARAT, AMPHET ASPARTATE, DEXTROAMPHET SULFATE AND AMP [Suspect]
     Active Substance: AMPHETAMINE ASPARTATE\AMPHETAMINE SULFATE\DEXTROAMPHETAMINE SACCHARATE\DEXTROAMPHETAMINE SULFATE
     Indication: Attention deficit hyperactivity disorder
     Dosage: FREQUENCY : TWICE A DAY;?
     Route: 048
     Dates: start: 20211123, end: 20220222
  2. DEXTROAMPHET SACCHARAT, AMPHET ASPARTATE, DEXTROAMPHET SULFATE AND AMP [Suspect]
     Active Substance: AMPHETAMINE ASPARTATE\AMPHETAMINE SULFATE\DEXTROAMPHETAMINE SACCHARATE\DEXTROAMPHETAMINE SULFATE
     Indication: Depression
  3. MELOXICAM [Concomitant]
     Active Substance: MELOXICAM
  4. BUPROPION [Concomitant]
     Active Substance: BUPROPION
  5. TESTOSTERONE [Concomitant]
     Active Substance: TESTOSTERONE
  6. Metropol succinate [Concomitant]
  7. CYCLOBENZAPRINE [Concomitant]
     Active Substance: CYCLOBENZAPRINE
  8. DRONABINOL [Concomitant]
     Active Substance: DRONABINOL
  9. LEVOTHYROXINE [Concomitant]
     Active Substance: LEVOTHYROXINE
  10. LORATADINE [Concomitant]
     Active Substance: LORATADINE
  11. VITAMINS [Concomitant]
     Active Substance: VITAMINS
  12. FISH OIL [Concomitant]
     Active Substance: FISH OIL
  13. LECITHIN [Concomitant]
     Active Substance: LECITHIN
  14. N-acetyl l-tyrosine [Concomitant]

REACTIONS (8)
  - Therapeutic product effect incomplete [None]
  - Feeling abnormal [None]
  - Hypersensitivity [None]
  - Depression [None]
  - Suspected product quality issue [None]
  - Product substitution issue [None]
  - Back pain [None]
  - Condition aggravated [None]
